FAERS Safety Report 6902447-8 (Version None)
Quarter: 2010Q3

REPORT INFORMATION
  Report Type: 
  Country: None (occurrence: None)
  Receive Date: 20100803
  Receipt Date: 20080524
  Transmission Date: 20110219
  Serious: No
  Sender: FDA-Public Use
  Company Number: US-PFIZER INC-2008005973

PATIENT
  Age: 55 Year
  Sex: Female

DRUGS (9)
  1. LYRICA [Suspect]
     Indication: FIBROMYALGIA
     Route: 048
  2. PREVACID [Concomitant]
  3. ESTRADIOL [Concomitant]
  4. LIDODERM [Concomitant]
  5. PROVERA [Concomitant]
  6. ESTRADIOL [Concomitant]
  7. FLONASE [Concomitant]
  8. ZOLPIDEM TARTRATE [Concomitant]
  9. TEMAZEPAM [Concomitant]

REACTIONS (1)
  - WEIGHT INCREASED [None]
